FAERS Safety Report 5571178-1 (Version None)
Quarter: 2007Q4

REPORT INFORMATION
  Report Type: 
  Country: None (occurrence: None)
  Receive Date: 20071221
  Receipt Date: 20071212
  Transmission Date: 20080405
  Serious: Yes (Other)
  Sender: FDA-Public Use
  Company Number: A0632473A

PATIENT
  Age: 68 Year
  Sex: Male
  Weight: 69.5 kg

DRUGS (5)
  1. FLONASE [Suspect]
     Indication: RHINITIS
     Route: 045
     Dates: start: 20020101, end: 20070101
  2. FLUTICASONE PROPIONATE [Suspect]
     Indication: RHINITIS
     Dosage: 2SPR PER DAY
     Route: 045
     Dates: start: 20061001, end: 20061201
  3. ALTACE [Concomitant]
     Dates: start: 20041101
  4. VALIUM [Concomitant]
  5. SINGULAIR [Concomitant]

REACTIONS (4)
  - CATARACT [None]
  - CONJUNCTIVITIS [None]
  - EPISTAXIS [None]
  - PHARMACEUTICAL PRODUCT COMPLAINT [None]
